FAERS Safety Report 7224166-3 (Version None)
Quarter: 2011Q1

REPORT INFORMATION
  Report Type: 
  Country: None (occurrence: None)
  Receive Date: 20110108
  Receipt Date: 20110108
  Transmission Date: 20110831
  Serious: Yes (Other)
  Sender: FDA-Public Use
  Company Number: None

PATIENT
  Age: 34 Year
  Sex: Female
  Weight: 58.9676 kg

DRUGS (1)
  1. IMITREX [Suspect]

REACTIONS (10)
  - ASTHENIA [None]
  - VISUAL IMPAIRMENT [None]
  - MUSCULAR WEAKNESS [None]
  - ERYTHEMA [None]
  - MALAISE [None]
  - SENSATION OF HEAVINESS [None]
  - DYSPNOEA [None]
  - FEELING HOT [None]
  - MUSCLE TIGHTNESS [None]
  - FEELING ABNORMAL [None]
